FAERS Safety Report 13034731 (Version 1)
Quarter: 2016Q4

REPORT INFORMATION
  Report Type: Spontaneous
  Country: US (occurrence: US)
  Receive Date: 20161216
  Receipt Date: 20161216
  Transmission Date: 20170207
  Serious: No
  Sender: FDA-Public Use
  Company Number: US-GLAXOSMITHKLINE-US2016GSK183031

PATIENT
  Age: 57 Year
  Sex: Female

DRUGS (1)
  1. NICOTINE POLACRILEX [Suspect]
     Active Substance: NICOTINE
     Indication: DEMENTIA ALZHEIMER^S TYPE
     Dosage: UNK

REACTIONS (3)
  - Pharyngeal disorder [Unknown]
  - Product use issue [Unknown]
  - Oral discomfort [Unknown]
